FAERS Safety Report 5975956-6 (Version None)
Quarter: 2008Q4

REPORT INFORMATION
  Report Type: 
  Country: None (occurrence: None)
  Receive Date: 20081202
  Receipt Date: 20081124
  Transmission Date: 20090506
  Serious: Yes (Other)
  Sender: FDA-Public Use
  Company Number: US-ELI_LILLY_AND_COMPANY-US200808002557

PATIENT
  Age: 58 Year
  Sex: Male

DRUGS (8)
  1. HUMALOG MIX 75/25 [Suspect]
     Indication: DIABETES MELLITUS
     Dosage: 15 U, UNK
     Dates: start: 20080101
  2. HUMULIN R [Suspect]
     Dosage: UNK, UNK
     Dates: start: 20010301, end: 20080101
  3. TIZANIDINE HCL [Concomitant]
     Indication: MUSCLE SPASMS
     Dosage: 4 MG, 3/D
  4. METFORMIN HCL [Concomitant]
     Indication: DIABETES MELLITUS
     Dosage: 500 MG, DAILY (1/D)
  5. GLIPIZIDE [Concomitant]
     Indication: DIABETES MELLITUS
     Dosage: 10 MG, DAILY (1/D)
  6. FAMOTIDINE [Concomitant]
     Indication: DYSPEPSIA
     Dosage: 20 MG, 2/D
  7. RAUZIDE [Concomitant]
     Indication: MUSCLE RELAXANT THERAPY
     Dosage: 25 MG, 3/D
  8. VICODIN [Concomitant]
     Indication: PAIN

REACTIONS (6)
  - FALL [None]
  - JOINT INJURY [None]
  - MOVEMENT DISORDER [None]
  - MULTIPLE SCLEROSIS [None]
  - MUSCULAR WEAKNESS [None]
  - OSTEOARTHRITIS [None]
